FAERS Safety Report 8761698 (Version 1)
Quarter: 2012Q4

REPORT INFORMATION
  Report Type: Spontaneous
  Country: US (occurrence: None)
  Receive Date: 20120830
  Receipt Date: 20120830
  Transmission Date: 20130627
  Serious: Yes (Life-Threatening, Hospitalization)
  Sender: FDA-Public Use
  Company Number: None

PATIENT
  Age: 78 Year
  Sex: Male
  Weight: 84.5 kg

DRUGS (1)
  1. ERBITUX [Suspect]
     Route: 042
     Dates: start: 20120803, end: 20120803

REACTIONS (7)
  - Acute respiratory failure [None]
  - Septic shock [None]
  - Otitis externa [None]
  - Systemic inflammatory response syndrome [None]
  - Pleural effusion [None]
  - Headache [None]
  - Dyskinesia [None]
